FAERS Safety Report 7171555-1 (Version None)
Quarter: 2010Q4

REPORT INFORMATION
  Report Type: 
  Country: None (occurrence: None)
  Receive Date: 20101217
  Receipt Date: 20101203
  Transmission Date: 20110411
  Serious: Yes (Hospitalization)
  Sender: FDA-Public Use
  Company Number: CO-AMGEN-QUU438549

PATIENT

DRUGS (12)
  1. BLINDED ETANERCEPT [Suspect]
     Indication: RHEUMATOID ARTHRITIS
     Dosage: 1 ML, QWK
     Route: 058
     Dates: start: 20090511
  2. PLACEBO [Suspect]
     Indication: RHEUMATOID ARTHRITIS
     Dosage: 1 ML, QWK
     Route: 058
     Dates: start: 20090511
  3. METHOTREXATE [Suspect]
     Indication: RHEUMATOID ARTHRITIS
     Dosage: 15 MG, QWK
     Route: 048
     Dates: start: 20090511
  4. FOLIC ACID [Concomitant]
     Dosage: UNK UNK, UNK
     Dates: start: 20080411
  5. FOLIC ACID [Concomitant]
     Dosage: UNK
     Route: 065
     Dates: start: 20080411
  6. LEVOTHYROXINE SODIUM [Concomitant]
     Indication: HYPOTHYROIDISM
     Dosage: UNK UNK, UNK
     Dates: start: 20040601
  7. PREDNISOLONE [Concomitant]
     Indication: RHEUMATOID ARTHRITIS
     Dosage: UNK UNK, UNK
     Dates: start: 20090723
  8. PREDNISOLONE [Concomitant]
     Dosage: UNK
     Route: 065
     Dates: start: 20090723
  9. ETANERCEPT [Suspect]
     Indication: RHEUMATOID ARTHRITIS
     Dosage: 1.0 ML, WEEKLY
     Route: 058
     Dates: start: 20090511
  10. METHOTREXATE SODIUM [Suspect]
     Dosage: 15.0 MG, WEEKLY
     Route: 048
     Dates: start: 20090511
  11. TIROXINA [Concomitant]
     Indication: HYPOTHYROIDISM
     Dosage: UNK
     Route: 065
     Dates: start: 20040601
  12. CHLOROQUINE [Concomitant]
     Dosage: UNK
     Dates: start: 20100905

REACTIONS (5)
  - DIABETES MELLITUS [None]
  - HYPERTENSION [None]
  - SEPSIS [None]
  - URINARY TRACT INFECTION [None]
  - VENOUS THROMBOSIS [None]
